FAERS Safety Report 5108762-5 (Version None)
Quarter: 2006Q3

REPORT INFORMATION
  Report Type: 
  Country: None (occurrence: None)
  Receive Date: 20060918
  Receipt Date: 20060905
  Transmission Date: 20061208
  Serious: Yes (Other)
  Sender: FDA-Public Use
  Company Number: 2006109435

PATIENT
  Age: 86 Year
  Sex: Male
  Weight: 68.0396 kg

DRUGS (12)
  1. LYRICA [Suspect]
     Indication: NEUROPATHY PERIPHERAL
     Dosage: 300 MG (150 MG,2 IN 1 D), ORAL
     Route: 048
     Dates: start: 20060101
  2. ASPIRIN [Concomitant]
  3. NORVASC [Concomitant]
  4. PROSCAR [Concomitant]
  5. PLAVIX [Concomitant]
  6. COREG [Concomitant]
  7. ALL OTHER THERAPEUTIC PRODUCTS [Concomitant]
  8. LASIX [Concomitant]
  9. OMEPRAZOLE [Concomitant]
  10. ALL OTHER THERAPEUTIC PRODUCTS [Concomitant]
  11. ZETIA [Concomitant]
  12. FENTANYL [Concomitant]

REACTIONS (5)
  - ABASIA [None]
  - DIZZINESS [None]
  - SEDATION [None]
  - SOMNOLENCE [None]
  - WEIGHT INCREASED [None]
